FAERS Safety Report 8052091-7 (Version None)
Quarter: 2012Q1

REPORT INFORMATION
  Report Type: 
  Country: None (occurrence: None)
  Receive Date: 20120118
  Receipt Date: 20120112
  Transmission Date: 20120608
  Serious: No
  Sender: FDA-Public Use
  Company Number: US-PFIZER INC-2012010069

PATIENT
  Sex: Female

DRUGS (1)
  1. PRISTIQ [Suspect]
     Indication: DEPRESSION
     Dosage: 50 MG, UNK
     Dates: start: 20110601, end: 20120101

REACTIONS (4)
  - IRRITABILITY [None]
  - AFFECT LABILITY [None]
  - HOSTILITY [None]
  - AGITATION [None]
